FAERS Safety Report 6666559-9 (Version None)
Quarter: 2010Q2

REPORT INFORMATION
  Report Type: 
  Country: None (occurrence: None)
  Receive Date: 20100402
  Receipt Date: 20100326
  Transmission Date: 20101027
  Serious: Yes (Other)
  Sender: FDA-Public Use
  Company Number: US-AMGEN-QUU377456

PATIENT
  Sex: Female

DRUGS (1)
  1. ENBREL [Suspect]
     Indication: RHEUMATOID ARTHRITIS
     Route: 058
     Dates: start: 20070531

REACTIONS (4)
  - ASTHMA [None]
  - CATARACT [None]
  - INTERSTITIAL LUNG DISEASE [None]
  - VISUAL IMPAIRMENT [None]
